FAERS Safety Report 18648512 (Version 3)
Quarter: 2021Q2

REPORT INFORMATION
  Report Type: Spontaneous
  Country: CA (occurrence: CA)
  Receive Date: 20201222
  Receipt Date: 20210505
  Transmission Date: 20210717
  Serious: Yes (Other)
  Sender: FDA-Public Use
  Company Number: CA-PFIZER INC-2020498574

PATIENT
  Age: 75 Year
  Sex: Female
  Weight: 82 kg

DRUGS (4)
  1. XELJANZ [Suspect]
     Active Substance: TOFACITINIB CITRATE
     Dosage: 5 MG, 2X/DAY
     Route: 048
     Dates: start: 2020, end: 2020
  2. PREDNISONE. [Concomitant]
     Active Substance: PREDNISONE
     Dosage: UNK (10)
  3. XELJANZ [Suspect]
     Active Substance: TOFACITINIB CITRATE
     Dosage: 5 MG, 2X/DAY
     Route: 048
     Dates: start: 20201215, end: 202101
  4. XELJANZ [Suspect]
     Active Substance: TOFACITINIB CITRATE
     Indication: RHEUMATOID ARTHRITIS
     Dosage: 5 MG, 2X/DAY
     Route: 048
     Dates: start: 20200611, end: 2020

REACTIONS (5)
  - C-reactive protein increased [Unknown]
  - Glomerular filtration rate decreased [Recovered/Resolved]
  - Tooth disorder [Unknown]
  - Pancreatic cyst [Recovered/Resolved]
  - Inflammation [Unknown]

NARRATIVE: CASE EVENT DATE: 2020
